FAERS Safety Report 5541533-4 (Version None)
Quarter: 2007Q4

REPORT INFORMATION
  Report Type: 
  Country: None (occurrence: None)
  Receive Date: 20071210
  Receipt Date: 20071203
  Transmission Date: 20080405
  Serious: Yes (Hospitalization)
  Sender: FDA-Public Use
  Company Number: PHEH2007US15399

PATIENT
  Age: 87 Year
  Sex: Female
  Weight: 39.455 kg

DRUGS (6)
  1. RECLAST [Suspect]
     Indication: OSTEOPOROSIS
     Dates: start: 20071128
  2. SINGULAIR [Concomitant]
  3. ADVAIR DISKUS 100/50 [Concomitant]
  4. PULMICORT [Concomitant]
  5. TOPAMAX [Concomitant]
  6. PREDNISONE [Concomitant]

REACTIONS (4)
  - BLOOD CALCIUM DECREASED [None]
  - BLOOD POTASSIUM DECREASED [None]
  - MUSCLE CONTRACTURE [None]
  - PARAESTHESIA [None]
